FAERS Safety Report 14773075 (Version 3)
Quarter: 2018Q2

REPORT INFORMATION
  Report Type: Report from Study
  Country: DE (occurrence: DE)
  Receive Date: 20180418
  Receipt Date: 20180507
  Transmission Date: 20180711
  Serious: Yes (Other)
  Sender: FDA-Public Use
  Company Number: DE-ROCHE-2105304

PATIENT
  Age: 76 Year
  Sex: Female
  Weight: 75 kg

DRUGS (13)
  1. RIBAVIRIN. [Suspect]
     Active Substance: RIBAVIRIN
     Indication: CHRONIC HEPATITIS C
     Dosage: MOST RECENT DOSE ON 12/MAY/2015
     Route: 048
     Dates: start: 20141119
  2. CELLCEPT [Concomitant]
     Active Substance: MYCOPHENOLATE MOFETIL\MYCOPHENOLATE MOFETIL HYDROCHLORIDE
     Route: 065
  3. AMLODIPIN [Concomitant]
     Active Substance: AMLODIPINE BESYLATE
  4. ASPIRIN. [Concomitant]
     Active Substance: ASPIRIN
  5. NEXAVAR [Concomitant]
     Active Substance: SORAFENIB
  6. XARELTO [Concomitant]
     Active Substance: RIVAROXABAN
  7. BISOPROLOL [Concomitant]
     Active Substance: BISOPROLOL
     Route: 065
     Dates: start: 20061101
  8. EUTHYROX [Concomitant]
     Active Substance: LEVOTHYROXINE SODIUM
  9. PROGRAF [Concomitant]
     Active Substance: TACROLIMUS\TACROLIMUS ANHYDROUS
  10. LEDIPASVIR/SOFOSBUVIR [Suspect]
     Active Substance: LEDIPASVIR\SOFOSBUVIR
     Indication: CHRONIC HEPATITIS C
     Dosage: MOST RECENT DOSE 12/MAY/2015
     Route: 048
     Dates: start: 20141119
  11. VIGANTOLETTEN [Concomitant]
     Active Substance: CHOLECALCIFEROL
  12. PANTOZOL [Concomitant]
     Active Substance: PANTOPRAZOLE SODIUM
  13. EVEROLIMUS. [Concomitant]
     Active Substance: EVEROLIMUS

REACTIONS (1)
  - Hepatocellular carcinoma [Unknown]

NARRATIVE: CASE EVENT DATE: 20170111
